FAERS Safety Report 4706499-5 (Version None)
Quarter: 2005Q3

REPORT INFORMATION
  Report Type: 
  Country: None (occurrence: None)
  Receive Date: 20050705
  Receipt Date: 20050624
  Transmission Date: 20060218
  Serious: Yes (Hospitalization)
  Sender: FDA-Public Use
  Company Number: FR-GLAXOSMITHKLINE-B0386489A

PATIENT
  Age: 92 Year
  Sex: Female
  Weight: 60 kg

DRUGS (6)
  1. LAMICTAL [Suspect]
     Indication: EPILEPSY
     Dosage: 25MG PER DAY
     Route: 048
     Dates: start: 20050503, end: 20050517
  2. CIFLOX [Suspect]
     Indication: URINARY TRACT INFECTION
     Dosage: 500MG TWICE PER DAY
     Route: 048
     Dates: start: 20050509, end: 20050517
  3. KARDEGIC [Concomitant]
     Dosage: 75MG PER DAY
     Route: 048
     Dates: end: 20050517
  4. DAFALGAN [Concomitant]
     Route: 048
  5. NEXIUM [Concomitant]
     Route: 048
  6. LEVOTHYROX [Concomitant]
     Route: 065

REACTIONS (6)
  - BLOOD CREATININE INCREASED [None]
  - BLOOD UREA INCREASED [None]
  - CREATININE RENAL CLEARANCE DECREASED [None]
  - INFLAMMATION [None]
  - PROTEINURIA [None]
  - RENAL FAILURE ACUTE [None]
